FAERS Safety Report 9781371 (Version 1)
Quarter: 2013Q4

REPORT INFORMATION
  Report Type: Spontaneous
  Country: US (occurrence: None)
  Receive Date: 20131223
  Receipt Date: 20131223
  Transmission Date: 20140711
  Serious: Yes (Other)
  Sender: FDA-Public Use
  Company Number: None

PATIENT
  Age: 66 Year
  Sex: Male

DRUGS (1)
  1. FENTANYL TRANSDERMAL SYSTEM [Suspect]
     Indication: PAIN
     Dosage: ONE PATCH, EVERY 48 HOURS, TRANSDERMAL
     Route: 062
     Dates: start: 20131219, end: 20131220

REACTIONS (4)
  - Drug effect delayed [None]
  - Drug effect decreased [None]
  - Product adhesion issue [None]
  - Drug withdrawal syndrome [None]
